FAERS Safety Report 20465689 (Version 1)
Quarter: 2022Q1

REPORT INFORMATION
  Report Type: Spontaneous
  Country: ZA (occurrence: ZA)
  Receive Date: 20220212
  Receipt Date: 20220212
  Transmission Date: 20220423
  Serious: Yes (Disabling)
  Sender: FDA-Public Use
  Company Number: ZA-SA-SAC20220204001547

PATIENT
  Sex: Female

DRUGS (6)
  1. ARAVA [Suspect]
     Active Substance: LEFLUNOMIDE
     Dosage: 20 MG
     Dates: start: 20210823
  2. METHOTREXATE [Suspect]
     Active Substance: METHOTREXATE
     Dosage: 15 MG
  3. SULFASALAZINE [Suspect]
     Active Substance: SULFASALAZINE
     Dosage: UNK
  4. CHLOROQUINE [Suspect]
     Active Substance: CHLOROQUINE
     Dosage: UNK
  5. INH [Concomitant]
     Active Substance: ISONIAZID
     Dosage: 300 MG, QD
  6. PYRIDOXINE [Concomitant]
     Active Substance: PYRIDOXINE
     Dosage: 25 MG

REACTIONS (2)
  - Loss of personal independence in daily activities [Unknown]
  - Gait disturbance [Unknown]
